FAERS Safety Report 7583263-3 (Version None)
Quarter: 2011Q2

REPORT INFORMATION
  Report Type: 
  Country: None (occurrence: None)
  Receive Date: 20110627
  Receipt Date: 20110627
  Transmission Date: 20111010
  Serious: Yes (Other)
  Sender: FDA-Public Use
  Company Number: None

PATIENT
  Age: 61 Year
  Sex: Male
  Weight: 89.3586 kg

DRUGS (13)
  1. VITB12 [Concomitant]
  2. THEOPHYLLINE [Concomitant]
  3. PRILOSEC [Concomitant]
  4. HYDROCHLOROTHIAZIDE [Concomitant]
  5. ADVAIR DISKUS 100/50 [Concomitant]
  6. ASPIRIN [Concomitant]
  7. FOLIC ACID [Concomitant]
  8. METOPROLOL TARTRATE [Concomitant]
  9. CETIRIZINE HCL [Concomitant]
  10. SYNTHROID [Concomitant]
  11. SUNITINIB MALATE [Suspect]
     Indication: GASTROINTESTINAL STROMAL TUMOUR
     Dosage: 25 MG QD PO
     Route: 048
     Dates: start: 20101101, end: 20110624
  12. FLUTICASONE PROPIONATE [Concomitant]
  13. LIPITOR [Concomitant]

REACTIONS (1)
  - DYSPHONIA [None]
